FAERS Safety Report 9748281 (Version 1)
Quarter: 2013Q4

REPORT INFORMATION
  Report Type: Spontaneous
  Country: US (occurrence: None)
  Receive Date: 20131211
  Receipt Date: 20131211
  Transmission Date: 20140711
  Serious: Yes (Hospitalization)
  Sender: FDA-Public Use
  Company Number: None

PATIENT
  Age: 44 Year
  Sex: Female
  Weight: 66.68 kg

DRUGS (1)
  1. EXJADE [Suspect]
     Route: 048
     Dates: start: 20131120

REACTIONS (2)
  - Haematuria [None]
  - Epistaxis [None]
